FAERS Safety Report 17141390 (Version 1)
Quarter: 2019Q4

REPORT INFORMATION
  Report Type: Spontaneous
  Country: US (occurrence: US)
  Receive Date: 20191211
  Receipt Date: 20191211
  Transmission Date: 20200122
  Serious: No
  Sender: FDA-Public Use
  Company Number: US-IPSEN BIOPHARMACEUTICALS, INC.-2019-24195

PATIENT
  Sex: Male

DRUGS (18)
  1. SOMATULINE DEPOT [Suspect]
     Active Substance: LANREOTIDE ACETATE
     Indication: ACROMEGALY
     Route: 058
     Dates: start: 20190423, end: 2019
  2. CLOPIDOGREL [Concomitant]
     Active Substance: CLOPIDOGREL BISULFATE
  3. LATANOPROST POW [Concomitant]
  4. VALSARTAN. [Concomitant]
     Active Substance: VALSARTAN
  5. METOLA ONE [Concomitant]
  6. FUROSEMIDE. [Concomitant]
     Active Substance: FUROSEMIDE
     Dosage: 0.5 ML
  7. ATORVASTATIN [Concomitant]
     Active Substance: ATORVASTATIN
  8. GLIPIZIDE. [Concomitant]
     Active Substance: GLIPIZIDE
  9. LEVOTHYROXINE. [Concomitant]
     Active Substance: LEVOTHYROXINE
  10. SOMATULINE DEPOT [Suspect]
     Active Substance: LANREOTIDE ACETATE
     Route: 058
     Dates: start: 2019
  11. FLUZONE HIGH SUS [Concomitant]
     Dosage: 0.5 ML
  12. GABAPENTIN. [Concomitant]
     Active Substance: GABAPENTIN
     Dosage: 0.5 ML
  13. PREDNISONE. [Concomitant]
     Active Substance: PREDNISONE
  14. CARVEDILOL. [Concomitant]
     Active Substance: CARVEDILOL
  15. LANTUS SOLOS SOP [Concomitant]
     Dosage: 100 UNIT
  16. OXYCODONE HC POW [Concomitant]
  17. POTASSIUM CH PAC [Concomitant]
  18. TRAMADOL HCL [Concomitant]
     Active Substance: TRAMADOL HYDROCHLORIDE

REACTIONS (2)
  - Peripheral swelling [Not Recovered/Not Resolved]
  - Erythema [Not Recovered/Not Resolved]

NARRATIVE: CASE EVENT DATE: 2019
